FAERS Safety Report 7717387-4 (Version None)
Quarter: 2011Q3

REPORT INFORMATION
  Report Type: 
  Country: None (occurrence: None)
  Receive Date: 20110824
  Receipt Date: 20110815
  Transmission Date: 20111222
  Serious: Yes (Hospitalization, Other)
  Sender: FDA-Public Use
  Company Number: 1000023004

PATIENT
  Age: 65 Year
  Sex: Female
  Weight: 68 kg

DRUGS (8)
  1. CELEXA [Suspect]
     Dates: start: 20110701
  2. ZYVOX [Suspect]
     Indication: STAPHYLOCOCCAL INFECTION
     Dosage: 600 MG BID (600 MG,2 IN 1 D), ORAL
     Route: 048
     Dates: start: 20110701, end: 20110701
  3. ATACAND [Concomitant]
  4. PLAQUENIL (HYDROXYCHLOROQUINE) (HYDROXYCHLOROQUINE) [Concomitant]
  5. SYNTHROID(LEVOTHYROXINE SODIUM)(LEVOTHYROXINE SODIUM) [Concomitant]
  6. CYMBALTA (DULOXETINE HYDROCHLORIDE) (DUDULOXETINE HYDROCHLORIDE) [Concomitant]
  7. CIPROFLOXACIN [Concomitant]
  8. ARTHROTEC (ARTHROTEC) (ARTHROTEC) [Concomitant]

REACTIONS (6)
  - ANAEMIA [None]
  - ATTENTION DEFICIT/HYPERACTIVITY DISORDER [None]
  - FAECES DISCOLOURED [None]
  - PLATELET DISORDER [None]
  - ACCIDENTAL EXPOSURE [None]
  - HAEMORRHAGE [None]
